FAERS Safety Report 6011978-7 (Version None)
Quarter: 2008Q4

REPORT INFORMATION
  Report Type: 
  Country: None (occurrence: None)
  Receive Date: 20081218
  Receipt Date: 20081017
  Transmission Date: 20090506
  Serious: No
  Sender: FDA-Public Use
  Company Number: US-ASTRAZENECA-2008UW23092

PATIENT
  Age: 822 Month
  Sex: Female

DRUGS (4)
  1. CRESTOR [Suspect]
     Dosage: 5 MG
     Route: 048
     Dates: start: 20080901, end: 20080901
  2. CRESTOR [Suspect]
     Dosage: 5 MG
     Route: 048
     Dates: start: 20081009
  3. OTC VITAMINS [Concomitant]
  4. BI-EST [Concomitant]
     Dosage: 1.25 MG

REACTIONS (3)
  - ABDOMINAL PAIN LOWER [None]
  - FLUSHING [None]
  - POLLAKIURIA [None]
